FAERS Safety Report 9456399 (Version 1)
Quarter: 2013Q3

REPORT INFORMATION
  Report Type: Report from Study
  Country: AU (occurrence: AU)
  Receive Date: 20130813
  Receipt Date: 20130813
  Transmission Date: 20140515
  Serious: Yes (Other)
  Sender: FDA-Public Use
  Company Number: AU-BAYER-2013-097656

PATIENT
  Age: 37 Year
  Sex: Female

DRUGS (1)
  1. BETAFERON [Suspect]
     Indication: MULTIPLE SCLEROSIS
     Dosage: 250 ?G/ML EVERY SECOND DAY
     Route: 058
     Dates: start: 20050101

REACTIONS (6)
  - Multiple sclerosis relapse [Unknown]
  - Multiple sclerosis relapse [None]
  - Injection site urticaria [Unknown]
  - Injection site infection [Unknown]
  - Injection site necrosis [Unknown]
  - Scar [Unknown]
